FAERS Safety Report 7311865-8 (Version None)
Quarter: 2011Q1

REPORT INFORMATION
  Report Type: 
  Country: None (occurrence: None)
  Receive Date: 20110215
  Receipt Date: 20110215
  Transmission Date: 20110831
  Serious: Yes (Hospitalization)
  Sender: FDA-Public Use
  Company Number: None

PATIENT
  Age: 90 Year
  Sex: Male
  Weight: 80.9 kg

DRUGS (11)
  1. FINASTERIDE [Concomitant]
  2. PLETAL [Suspect]
     Indication: TRANSIENT ISCHAEMIC ATTACK
     Dosage: 50MG BID PO CHRONIC
     Route: 048
  3. AMLODIPINE [Concomitant]
  4. IMODIUM MULTI-SYMPTOM RELIEF [Concomitant]
  5. FLOMAX [Concomitant]
  6. AGGRENOX [Suspect]
     Indication: TRANSIENT ISCHAEMIC ATTACK
     Dosage: ONE BID PO CHRONIC
     Route: 048
  7. TOPROL-XL [Concomitant]
  8. HYDRALAZINE [Concomitant]
  9. LANTUS [Concomitant]
  10. NIASPAN [Concomitant]
  11. PRAVACHOL [Concomitant]

REACTIONS (2)
  - GASTROENTERITIS VIRAL [None]
  - OESOPHAGITIS [None]
